FAERS Safety Report 18476221 (Version 3)
Quarter: 2020Q4

REPORT INFORMATION
  Report Type: Spontaneous
  Country: US (occurrence: US)
  Receive Date: 20201106
  Receipt Date: 20201112
  Transmission Date: 20210114
  Serious: No
  Sender: FDA-Public Use
  Company Number: US-PFIZER INC-2020425750

PATIENT
  Age: 50 Year
  Sex: Female
  Weight: 61.23 kg

DRUGS (4)
  1. EUCRISA [Suspect]
     Active Substance: CRISABOROLE
     Indication: PRURITUS
     Dosage: UNK, 2X/DAY (APPLY TO FACE AND BODY, AS NEEDED)
     Route: 061
     Dates: start: 202008
  2. EUCRISA [Suspect]
     Active Substance: CRISABOROLE
     Indication: RASH
  3. EUCRISA [Suspect]
     Active Substance: CRISABOROLE
     Indication: DERMATITIS ATOPIC
  4. CETAPHIL [CETYL ALCOHOL;SODIUM LAURYL SULFATE] [Concomitant]
     Dosage: UNK

REACTIONS (2)
  - Application site pain [Recovering/Resolving]
  - Wrong technique in product usage process [Unknown]

NARRATIVE: CASE EVENT DATE: 202008
